FAERS Safety Report 4527963-8 (Version None)
Quarter: 2004Q4

REPORT INFORMATION
  Report Type: 
  Country: None (occurrence: None)
  Receive Date: 20041123
  Receipt Date: 20040625
  Transmission Date: 20050328
  Serious: Yes (Other)
  Sender: FDA-Public Use
  Company Number: 2003123652

PATIENT
  Age: 67 Year
  Sex: Female

DRUGS (9)
  1. LIPITOR [Suspect]
     Indication: ILL-DEFINED DISORDER
     Dosage: 20 MG (DAILY), ORAL
     Route: 048
     Dates: start: 19981008, end: 20031001
  2. ASCORBIC ACID [Concomitant]
  3. TOCOPHEROL CONCENTRATE CAP [Concomitant]
  4. LISINOPRIL [Concomitant]
  5. ALENDRONATE SODIUM [Concomitant]
  6. ASPIRIN [Concomitant]
  7. CALCIUM CARBONATE (CALCIUM CARBONATE) [Concomitant]
  8. CYANOCOBALAMIN (CYANOCOBALAMIN) [Concomitant]
  9. MULTIVITAMINS (ASCORBIC ACID, ERGOCALCIFEROL, FOLIC ACID, NICOTINAMIDE [Concomitant]

REACTIONS (15)
  - ASTHENIA [None]
  - BACK PAIN [None]
  - BLOOD CHOLESTEROL INCREASED [None]
  - BLOOD GLUCOSE INCREASED [None]
  - BLOOD TRIGLYCERIDES INCREASED [None]
  - CONSTIPATION [None]
  - DRUG TOXICITY [None]
  - HEPATIC STEATOSIS [None]
  - HEPATITIS [None]
  - HEPATOCELLULAR DAMAGE [None]
  - INFLUENZA [None]
  - MALAISE [None]
  - OSTEOPOROSIS [None]
  - PAIN [None]
  - PYREXIA [None]
